FAERS Safety Report 5223748-8 (Version None)
Quarter: 2007Q1

REPORT INFORMATION
  Report Type: 
  Country: None (occurrence: None)
  Receive Date: 20070130
  Receipt Date: 20070123
  Transmission Date: 20070707
  Serious: Yes (Other)
  Sender: FDA-Public Use
  Company Number: 2007UW01388

PATIENT
  Age: 57 Year
  Sex: Male
  Weight: 115.7 kg

DRUGS (25)
  1. SEROQUEL [Suspect]
     Indication: DEPRESSION
     Route: 048
     Dates: start: 20060401
  2. SEROQUEL [Suspect]
     Indication: BIPOLAR DISORDER
     Route: 048
     Dates: start: 20060401
  3. SEROQUEL [Suspect]
     Dosage: DOSE DECREASED 50 MG/DAY A WEEK
     Route: 048
     Dates: start: 20061229, end: 20070109
  4. SEROQUEL [Suspect]
     Dosage: DOSE DECREASED 50 MG/DAY A WEEK
     Route: 048
     Dates: start: 20061229, end: 20070109
  5. LORAZEPAM [Concomitant]
  6. LYRICA [Concomitant]
  7. IMODIUM [Concomitant]
  8. LORATADINE [Concomitant]
     Route: 055
  9. FLONASE [Concomitant]
  10. NEXIUM [Concomitant]
     Route: 048
  11. LIDODERM [Concomitant]
     Route: 061
  12. VICODIN [Concomitant]
  13. WELLBUTRIN [Concomitant]
  14. CIPRO [Concomitant]
  15. LEXAPRO [Concomitant]
  16. DIGOXIN [Concomitant]
  17. SPIRONOLACTONE [Concomitant]
  18. BETAPACE [Concomitant]
  19. COUMADIN [Concomitant]
  20. LASIX [Concomitant]
  21. POTASSIUM ACETATE [Concomitant]
  22. MAGNESIUM [Concomitant]
  23. METFORMIN HCL [Concomitant]
  24. NYZORAL SHAMPOO [Concomitant]
  25. FLUCONAZOLE [Concomitant]

REACTIONS (4)
  - BLOOD TRIGLYCERIDES INCREASED [None]
  - DERMATITIS [None]
  - DIABETIC FOOT INFECTION [None]
  - LOCALISED INFECTION [None]
